FAERS Safety Report 13876603 (Version 1)
Quarter: 2017Q3

REPORT INFORMATION
  Report Type: Spontaneous
  Country: US (occurrence: None)
  Receive Date: 20170814
  Receipt Date: 20170814
  Transmission Date: 20171127
  Serious: Yes (Other)
  Sender: FDA-Public Use
  Company Number: None

PATIENT
  Age: 51 Year
  Sex: Female

DRUGS (1)
  1. BOTOX [Suspect]
     Active Substance: ONABOTULINUMTOXINA
     Indication: TORTICOLLIS
     Dosage: FREQUENCY - 200 UNITS EVERY 90 DAYS
     Route: 030
     Dates: start: 20170710, end: 20170710

REACTIONS (3)
  - Impaired work ability [None]
  - Muscular weakness [None]
  - Periarthritis [None]

NARRATIVE: CASE EVENT DATE: 20170711
